FAERS Safety Report 5999905-X (Version None)
Quarter: 2008Q4

REPORT INFORMATION
  Report Type: 
  Country: None (occurrence: None)
  Receive Date: 20081215
  Receipt Date: 20081205
  Transmission Date: 20090506
  Serious: Yes (Other)
  Sender: FDA-Public Use
  Company Number: PHHY2008MX31022

PATIENT
  Age: 63 Year
  Sex: Female

DRUGS (2)
  1. DIOVAN HCT [Suspect]
     Indication: HYPERTENSION
     Dosage: 1 TABLET (160/25 MG) PER DAY
     Route: 048
     Dates: end: 20081201
  2. CONTROLIP (FENOFIBRATE) [Concomitant]

REACTIONS (3)
  - CARDIOMEGALY [None]
  - DYSPNOEA [None]
  - HYPERTENSION [None]
